FAERS Safety Report 5257240-1 (Version None)
Quarter: 2007Q1

REPORT INFORMATION
  Report Type: 
  Country: None (occurrence: None)
  Receive Date: 20070307
  Receipt Date: 20070305
  Transmission Date: 20070707
  Serious: Yes (Disabling, Other)
  Sender: FDA-Public Use
  Company Number: ES-JNJFOC-20070204900

PATIENT
  Age: 45 Year
  Sex: Female
  Weight: 60 kg

DRUGS (2)
  1. REMICADE [Suspect]
     Dosage: 2ND-3RD INFUSION
     Route: 042
  2. REMICADE [Suspect]
     Indication: HIDRADENITIS
     Dosage: 2 VIALS PER INFUSION
     Route: 042

REACTIONS (4)
  - DEPRESSION [None]
  - FATIGUE [None]
  - INFUSION RELATED REACTION [None]
  - PRURITUS [None]
